FAERS Safety Report 5131310-0 (Version None)
Quarter: 2006Q4

REPORT INFORMATION
  Report Type: 
  Country: None (occurrence: None)
  Receive Date: 20061020
  Receipt Date: 20061012
  Transmission Date: 20070319
  Serious: Yes (Hospitalization)
  Sender: FDA-Public Use
  Company Number: US-JNJFOC-20061002717

PATIENT
  Sex: Female
  Weight: 94.6 kg

DRUGS (3)
  1. REMICADE [Suspect]
     Indication: CROHN'S DISEASE
     Route: 042
  2. 5-ASA [Concomitant]
  3. 6MP [Concomitant]

REACTIONS (1)
  - DEPRESSION [None]
